FAERS Safety Report 18220693 (Version 1)
Quarter: 2020Q3

REPORT INFORMATION
  Report Type: Spontaneous
  Country: US (occurrence: US)
  Receive Date: 20200902
  Receipt Date: 20200902
  Transmission Date: 20201103
  Serious: No
  Sender: FDA-Public Use
  Company Number: US-MICRO LABS LIMITED-ML2020-01718

PATIENT
  Age: 62 Year
  Sex: Male

DRUGS (7)
  1. DOXYCYCLINE. [Concomitant]
     Active Substance: DOXYCYCLINE
     Indication: AMYLOIDOSIS
  2. ATORVASTATIN [Suspect]
     Active Substance: ATORVASTATIN
  3. BUPROPION. [Concomitant]
     Active Substance: BUPROPION
  4. LISINOPRIL. [Concomitant]
     Active Substance: LISINOPRIL
  5. ZYDUS FLUCONAZOLE [Suspect]
     Active Substance: FLUCONAZOLE
     Indication: CANDIDA INFECTION
     Dosage: 100 MG FOR 3 WEEKS AND STOPPED TAKING ON SUNDAY
     Route: 048
     Dates: start: 20200427, end: 20200510
  6. FUROSEMIDE. [Concomitant]
     Active Substance: FUROSEMIDE
  7. SERTRALINE [Concomitant]
     Active Substance: SERTRALINE HYDROCHLORIDE

REACTIONS (5)
  - Feeling jittery [Not Recovered/Not Resolved]
  - Abdominal pain upper [Not Recovered/Not Resolved]
  - Pain [Not Recovered/Not Resolved]
  - Chills [Not Recovered/Not Resolved]
  - Confusional state [Not Recovered/Not Resolved]

NARRATIVE: CASE EVENT DATE: 202005
